FAERS Safety Report 17665886 (Version 3)
Quarter: 2020Q2

REPORT INFORMATION
  Report Type: Spontaneous
  Country: US (occurrence: US)
  Receive Date: 20200414
  Receipt Date: 20200616
  Transmission Date: 20200713
  Serious: No
  Sender: FDA-Public Use
  Company Number: US-GLAXOSMITHKLINE-US2020AMR062764

PATIENT
  Sex: Female

DRUGS (2)
  1. ZEJULA [Suspect]
     Active Substance: NIRAPARIB
     Indication: OVARIAN CANCER
     Dosage: 200 MG, QD
     Dates: start: 20200327
  2. TYLENOL [Suspect]
     Active Substance: ACETAMINOPHEN
     Indication: PRODUCT USED FOR UNKNOWN INDICATION
     Dosage: UNK

REACTIONS (15)
  - Facial pain [Unknown]
  - Mastication disorder [Unknown]
  - Asthenia [Unknown]
  - Laboratory test abnormal [Unknown]
  - Hypoaesthesia [Unknown]
  - Dyskinesia [Unknown]
  - Dizziness [Unknown]
  - Insomnia [Unknown]
  - Discomfort [Unknown]
  - Pain in extremity [Unknown]
  - Toothache [Unknown]
  - Pruritus [Unknown]
  - Underdose [Unknown]
  - Abdominal discomfort [Unknown]
  - Muscular weakness [Unknown]
